FAERS Safety Report 9683385 (Version 1)
Quarter: 2013Q4

REPORT INFORMATION
  Report Type: Spontaneous
  Country: US (occurrence: US)
  Receive Date: 20131112
  Receipt Date: 20131112
  Transmission Date: 20140711
  Serious: No
  Sender: FDA-Public Use
  Company Number: US-PFIZER INC-2013322157

PATIENT
  Age: 21 Year
  Sex: Male
  Weight: 122 kg

DRUGS (3)
  1. CHANTIX [Suspect]
     Indication: SMOKING CESSATION THERAPY
     Dosage: UNK, DAILY
     Dates: start: 20131104
  2. CAMPRAL [Concomitant]
     Indication: DRUG DEPENDENCE
     Dosage: 666 MG, 3X/DAY
  3. CELEXA [Concomitant]
     Indication: DEPRESSION
     Dosage: 20 MG, DAILY

REACTIONS (2)
  - Agitation [Recovering/Resolving]
  - Mood altered [Recovering/Resolving]
